FAERS Safety Report 6190934-2 (Version None)
Quarter: 2009Q2

REPORT INFORMATION
  Report Type: 
  Country: None (occurrence: None)
  Receive Date: 20090513
  Receipt Date: 20090504
  Transmission Date: 20091009
  Serious: Yes (Other)
  Sender: FDA-Public Use
  Company Number: POMP-1000543

PATIENT
  Age: 4 Year
  Sex: Female

DRUGS (1)
  1. MYOZYME [Suspect]
     Indication: GLYCOGEN STORAGE DISEASE TYPE II
     Dosage: 20 MG/KG, Q2W, INTRAVENOUS
     Route: 042
     Dates: start: 20050802

REACTIONS (31)
  - ABDOMINAL DISTENSION [None]
  - ANAEMIA [None]
  - ASCITES [None]
  - ATELECTASIS [None]
  - BEDRIDDEN [None]
  - BRADYCARDIA [None]
  - C-REACTIVE PROTEIN INCREASED [None]
  - CANDIDIASIS [None]
  - CARDIAC ARREST [None]
  - CHOLELITHIASIS [None]
  - DIARRHOEA [None]
  - ESCHERICHIA INFECTION [None]
  - FUNGAL INFECTION [None]
  - HEPATIC FUNCTION ABNORMAL [None]
  - HUMERUS FRACTURE [None]
  - HYPERCAPNIA [None]
  - HYPOALBUMINAEMIA [None]
  - IMPAIRED GASTRIC EMPTYING [None]
  - LOBAR PNEUMONIA [None]
  - NAUSEA [None]
  - OESOPHAGEAL OBSTRUCTION [None]
  - PRECOCIOUS PUBERTY [None]
  - PYLORIC STENOSIS [None]
  - PYREXIA [None]
  - RESPIRATORY FAILURE [None]
  - STAPHYLOCOCCAL INFECTION [None]
  - UPPER GASTROINTESTINAL HAEMORRHAGE [None]
  - URINARY TRACT INFECTION [None]
  - VAGINAL DISCHARGE [None]
  - VAGINAL INFECTION [None]
  - VENTRICULAR EXTRASYSTOLES [None]
